FAERS Safety Report 4447840-0 (Version None)
Quarter: 2004Q3

REPORT INFORMATION
  Report Type: 
  Country: None (occurrence: None)
  Receive Date: 20040729
  Receipt Date: 20031230
  Transmission Date: 20050211
  Serious: Yes (Other)
  Sender: FDA-Public Use
  Company Number: SAGL/03/31/UNK

PATIENT
  Sex: Male

DRUGS (1)
  1. SANDOGLOBULIN [Suspect]
     Indication: DEMYELINATING POLYNEUROPATHY
     Dosage: 2 G, I.V. INF.
     Dates: start: 20021111, end: 20021111

REACTIONS (2)
  - PYREXIA [None]
  - VOMITING [None]
